FAERS Safety Report 17172914 (Version 1)
Quarter: 2019Q4

REPORT INFORMATION
  Report Type: Spontaneous
  Country: US (occurrence: US)
  Receive Date: 20191218
  Receipt Date: 20191218
  Transmission Date: 20200122
  Serious: No
  Sender: FDA-Public Use
  Company Number: US-BAYER-2019-229741

PATIENT
  Age: 35 Year
  Sex: Male

DRUGS (4)
  1. CLARITIN-D 12 HOUR [Suspect]
     Active Substance: LORATADINE\PSEUDOEPHEDRINE SULFATE
     Indication: NASAL POLYPS
     Dosage: 1 DF
     Route: 048
     Dates: start: 20191215, end: 20191215
  2. TRESIBA [Concomitant]
     Active Substance: INSULIN DEGLUDEC
     Dosage: UNK
  3. NOVOLOG [Concomitant]
     Active Substance: INSULIN ASPART
     Dosage: UNK
  4. MUCINEX [Concomitant]
     Active Substance: GUAIFENESIN
     Dosage: UNK

REACTIONS (3)
  - Off label use [Unknown]
  - Initial insomnia [None]
  - Product use in unapproved indication [Unknown]

NARRATIVE: CASE EVENT DATE: 20191215
